FAERS Safety Report 10641828 (Version 1)
Quarter: 2014Q4

REPORT INFORMATION
  Report Type: Spontaneous
  Country: US (occurrence: US)
  Receive Date: 20141209
  Receipt Date: 20141209
  Transmission Date: 20150529
  Serious: No
  Sender: FDA-Public Use
  Company Number: US-TEVA-527850USA

PATIENT
  Sex: Female
  Weight: 42.68 kg

DRUGS (3)
  1. PARAGARD T380A [Suspect]
     Active Substance: COPPER
     Indication: CONTRACEPTION
     Route: 015
     Dates: start: 20141117
  2. IRON [Concomitant]
     Active Substance: IRON
     Indication: POSTPARTUM STATE
  3. PARAGARD T380A [Suspect]
     Active Substance: COPPER
     Route: 015
     Dates: start: 20141208

REACTIONS (1)
  - Device expulsion [Recovered/Resolved]
